FAERS Safety Report 10156915 (Version 2)
Quarter: 2014Q3

REPORT INFORMATION
  Report Type: Spontaneous
  Country: US (occurrence: US)
  Receive Date: 20140507
  Receipt Date: 20140930
  Transmission Date: 20150326
  Serious: Yes (Other)
  Sender: FDA-Public Use
  Company Number: US-MYLANLABS-2014S1006667

PATIENT

DRUGS (4)
  1. PSEUDOEPHEDRIN HYDROCHLORIDE [Concomitant]
     Indication: HYPERSENSITIVITY
     Dosage: 60 MG, QD
  2. B12                                /00056201/ [Concomitant]
     Dosage: 2500 ?G,EVERY OTHER WEEK
  3. NORETHISTERONE [Suspect]
     Active Substance: NORETHINDRONE
     Indication: CONTRACEPTION
     Dosage: 0.35 MG, QD
     Dates: start: 20140318, end: 20140319
  4. LORATADINE. [Concomitant]
     Active Substance: LORATADINE
     Indication: HYPERSENSITIVITY
     Dosage: 10 MG, QD

REACTIONS (27)
  - Dizziness [Recovered/Resolved]
  - Thinking abnormal [Recovered/Resolved]
  - Oedema peripheral [Recovered/Resolved]
  - Gastrointestinal oedema [Recovered/Resolved]
  - Muscle fatigue [Recovered/Resolved]
  - Joint stiffness [Recovered/Resolved]
  - Abnormal faeces [Recovered/Resolved]
  - Muscular weakness [Recovered/Resolved]
  - Pain [Recovered/Resolved]
  - Nausea [Recovered/Resolved]
  - Constipation [Recovered/Resolved]
  - Feeling abnormal [Recovered/Resolved]
  - Impaired driving ability [Recovered/Resolved]
  - Pruritus [Recovered/Resolved]
  - Gastrointestinal disorder [Recovered/Resolved]
  - Impaired work ability [Recovered/Resolved]
  - Faeces pale [Recovered/Resolved]
  - Hypoaesthesia [Recovered/Resolved]
  - Lethargy [Recovered/Resolved]
  - Arthralgia [Recovered/Resolved]
  - Migraine [Recovered/Resolved]
  - Initial insomnia [Recovered/Resolved]
  - Rash [Recovered/Resolved]
  - Headache [Recovered/Resolved]
  - Reaction to drug excipients [Recovered/Resolved]
  - Diarrhoea [Recovered/Resolved]
  - Myalgia [Recovered/Resolved]

NARRATIVE: CASE EVENT DATE: 201403
